FAERS Safety Report 6167140-0 (Version None)
Quarter: 2009Q2

REPORT INFORMATION
  Report Type: 
  Country: None (occurrence: None)
  Receive Date: 20090424
  Receipt Date: 20090420
  Transmission Date: 20091009
  Serious: Yes (Other)
  Sender: FDA-Public Use
  Company Number: US-PURDUE-USA_2009_0037952

PATIENT
  Sex: Male

DRUGS (1)
  1. SENOKOT [Suspect]
     Indication: CONSTIPATION
     Dosage: 2 TABLET, BID

REACTIONS (2)
  - GASTROINTESTINAL INFLAMMATION [None]
  - RECTAL HAEMORRHAGE [None]
